FAERS Safety Report 4815418-2 (Version None)
Quarter: 2005Q4

REPORT INFORMATION
  Report Type: 
  Country: None (occurrence: None)
  Receive Date: 20051027
  Receipt Date: 20051014
  Transmission Date: 20060501
  Serious: Yes (Hospitalization, Other)
  Sender: FDA-Public Use
  Company Number: 8010730

PATIENT
  Age: 14 Year
  Sex: Female
  Weight: 90.5 kg

DRUGS (1)
  1. KEPPRA [Suspect]
     Indication: COMPLEX PARTIAL SEIZURES
     Dosage: 500 MG 2/D PO
     Route: 048
     Dates: start: 20050519, end: 20050523

REACTIONS (5)
  - ESCHERICHIA SEPSIS [None]
  - GRAND MAL CONVULSION [None]
  - PLEOCYTOSIS [None]
  - PSYCHOTIC DISORDER [None]
  - STAPHYLOCOCCAL SEPSIS [None]
